FAERS Safety Report 11310272 (Version 1)
Quarter: 2015Q3

REPORT INFORMATION
  Report Type: Spontaneous
  Country: US (occurrence: US)
  Receive Date: 20150724
  Receipt Date: 20150724
  Transmission Date: 20151125
  Serious: Yes (Other)
  Sender: FDA-Public Use
  Company Number: US-PFIZER INC-2015244068

PATIENT
  Age: 60 Year
  Sex: Female
  Weight: 83.45 kg

DRUGS (1)
  1. IBRANCE [Suspect]
     Active Substance: PALBOCICLIB
     Indication: BREAST CANCER FEMALE
     Dosage: 75 MG, CYCLIC (D1-14 Q 28D)
     Route: 048
     Dates: start: 20150410

REACTIONS (2)
  - Fatigue [Unknown]
  - Neutropenia [Not Recovered/Not Resolved]
